FAERS Safety Report 9949246 (Version 2)
Quarter: 2014Q2

REPORT INFORMATION
  Report Type: Spontaneous
  Country: US (occurrence: None)
  Receive Date: 20140122
  Receipt Date: 20140421
  Transmission Date: 20141212
  Serious: Yes (Other)
  Sender: FDA-Public Use
  Company Number: AEGR000223

PATIENT
  Age: 52 Year
  Sex: Female
  Weight: 99.8 kg

DRUGS (12)
  1. JUXTAPID [Suspect]
     Indication: BLOOD CHOLESTEROL INCREASED
     Route: 048
     Dates: start: 201310, end: 2013
  2. PROPRANOLOL (PROPRANOLOL HYDROCHLORIDE) [Concomitant]
  3. GLIPIZIDE (GLIPIZIDE) [Concomitant]
  4. LISINOPRIL AND HYDROCHLOROTHIAZIDE (HYDROCHLOROTHIAZIDE, LISINOPRIL) [Concomitant]
  5. LASIX (FUROSEMIDE) [Concomitant]
  6. PROZAC (FLUOXETINE HYDROCHLORIDE) [Concomitant]
  7. ADVAIR (FLUTICASONE PROPIONATE, SALMETEROL XINAFOATE) [Concomitant]
  8. ALBUTEROL (SALBUTAMOL SULFATE) [Concomitant]
  9. IBUPROFEN [Concomitant]
  10. LISINOPRIL [Concomitant]
  11. OMEPRAZOLE [Concomitant]
  12. POTASSIUM CHLORIDE [Concomitant]

REACTIONS (5)
  - Paraesthesia [None]
  - Rhinorrhoea [None]
  - Off label use [None]
  - Abdominal pain upper [None]
  - Malaise [None]
